FAERS Safety Report 20975344 (Version 1)
Quarter: 2022Q2

REPORT INFORMATION
  Report Type: Report from Study
  Country: IT (occurrence: IT)
  Receive Date: 20220617
  Receipt Date: 20220617
  Transmission Date: 20220721
  Serious: Yes (Death, Other)
  Sender: FDA-Public Use
  Company Number: IT-PFIZER INC-202200812128

PATIENT

DRUGS (12)
  1. DOXORUBICIN HYDROCHLORIDE [Suspect]
     Active Substance: DOXORUBICIN HYDROCHLORIDE
     Indication: Burkitt^s lymphoma
     Dosage: 50 MG/M2 (DAY 29 INDUCTION DOSE)
     Route: 040
  2. CYTARABINE [Suspect]
     Active Substance: CYTARABINE
     Indication: High-grade B-cell lymphoma
     Dosage: 50 MG N DAYS 5, 19, AND 33 (INDUCTION)
     Route: 037
  3. CYTARABINE [Suspect]
     Active Substance: CYTARABINE
     Indication: High-grade B-cell lymphoma
     Dosage: DOSE UNKNOWN VIA INFUSION DURING CONSOLIDATION
  4. METHOTREXATE SODIUM [Suspect]
     Active Substance: METHOTREXATE SODIUM
     Indication: Burkitt^s lymphoma
     Dosage: 12 MG ON DAYS 5, 19, AND 33 (INDUCTION)
     Route: 037
  5. METHOTREXATE SODIUM [Suspect]
     Active Substance: METHOTREXATE SODIUM
     Indication: Burkitt^s lymphoma
     Dosage: 3 G/M2 OVER 6 HOURS AT DAYS 7 AND DAY 21
     Route: 042
  6. RITUXIMAB [Suspect]
     Active Substance: RITUXIMAB
     Indication: Burkitt^s lymphoma
     Dosage: 375 MG/M2 (DAY 2, 14, 29, AND 36 INDUCTION DOSE)
  7. VINCRISTINE SULFATE [Suspect]
     Active Substance: VINCRISTINE SULFATE
     Indication: Burkitt^s lymphoma
     Dosage: 2 MG TOTAL DOSE (DAY 0 AND 36 INDUCTION DOSE)
     Route: 040
  8. CYCLOPHOSPHAMIDE [Suspect]
     Active Substance: CYCLOPHOSPHAMIDE
     Indication: Burkitt^s lymphoma
     Dosage: 500 MG/M2, OVER 1 HR INFUSION (DAY 0 AND DAY 1 INDUCTION DOSE)
  9. ETOPOSIDE [Suspect]
     Active Substance: ETOPOSIDE
     Indication: Burkitt^s lymphoma
     Dosage: 250 MG/M2 EVERY 12 HOURS (DAY 15 INDUCTION DOSE)
  10. METHYLPREDNISOLONE [Suspect]
     Active Substance: METHYLPREDNISOLONE
     Indication: Burkitt^s lymphoma
     Dosage: METHYLPREDNISOLONE 0.5-1 MG/KG/D  (-2; -1; 0 DAY DOSE  INDUCTION)
     Route: 042
  11. LEUCOVORIN CALCIUM [Suspect]
     Active Substance: LEUCOVORIN CALCIUM
     Indication: Burkitt^s lymphoma
     Dosage: UNKNOWN DOSE (INDUCTION THERAPY)
  12. HYDROCORTISONE [Suspect]
     Active Substance: HYDROCORTISONE
     Dosage: 40 MG INTRATHECAL ON DAYS 5, 19, AND 33 (INDUCTION)
     Route: 037

REACTIONS (1)
  - Sepsis [Fatal]
